FAERS Safety Report 26060834 (Version 2)
Quarter: 2025Q4

REPORT INFORMATION
  Report Type: Spontaneous
  Country: GB (occurrence: GB)
  Receive Date: 20251118
  Receipt Date: 20251127
  Transmission Date: 20260117
  Serious: Yes (Other)
  Sender: PFIZER
  Company Number: GB-PFIZER INC-PV202500134754

PATIENT
  Age: 68 Year
  Sex: Male

DRUGS (1)
  1. GEMCITABINE HYDROCHLORIDE [Suspect]
     Active Substance: GEMCITABINE HYDROCHLORIDE
     Indication: Cutaneous T-cell lymphoma
     Dosage: UNK, CYCLIC

REACTIONS (5)
  - Immunosuppression [Unknown]
  - Condition aggravated [Unknown]
  - Bacterial endophthalmitis [Recovering/Resolving]
  - Neutropenic sepsis [Unknown]
  - Off label use [Unknown]
